FAERS Safety Report 5711228-2 (Version None)
Quarter: 2008Q2

REPORT INFORMATION
  Report Type: 
  Country: None (occurrence: None)
  Receive Date: 20080421
  Receipt Date: 20080409
  Transmission Date: 20081010
  Serious: Yes (Other)
  Sender: FDA-Public Use
  Company Number: US-BAYER-200810823BCC

PATIENT
  Age: 70 Year
  Sex: Male
  Weight: 88 kg

DRUGS (13)
  1. ALEVE [Suspect]
     Indication: BACK PAIN
     Dosage: TOTAL DAILY DOSE: 880 MG  UNIT DOSE: 220 MG
     Route: 048
     Dates: start: 20080129, end: 20080201
  2. ALEVE [Suspect]
     Dosage: UNIT DOSE: 220 MG
     Route: 048
     Dates: start: 20080201, end: 20080101
  3. PRILOSEC [Concomitant]
     Route: 048
     Dates: start: 20080101, end: 20080201
  4. TYLENOL [Concomitant]
  5. LIPITOR [Concomitant]
     Dates: start: 19970111
  6. PULMICORT [Concomitant]
     Dates: start: 20080115
  7. VITAMIN COTTAGE MEGA ONE DAY [Concomitant]
  8. COQ10 [Concomitant]
  9. ZYRTEC [Concomitant]
     Dates: start: 20070601
  10. ARGININE [Concomitant]
  11. ORNITHINE [Concomitant]
  12. AL-CARNITINE [Concomitant]
  13. ASPIRIN [Concomitant]
     Dates: start: 19970111

REACTIONS (1)
  - HAEMATOCHEZIA [None]
